FAERS Safety Report 4457404-0 (Version None)
Quarter: 2004Q3

REPORT INFORMATION
  Report Type: 
  Country: None (occurrence: None)
  Receive Date: 20040922
  Receipt Date: 20040907
  Transmission Date: 20050211
  Serious: Yes (Hospitalization)
  Sender: FDA-Public Use
  Company Number: US_030494250

PATIENT
  Age: 11 Year
  Sex: Male
  Weight: 34 kg

DRUGS (2)
  1. STRATTERA [Suspect]
     Indication: ATTENTION DEFICIT/HYPERACTIVITY DISORDER
     Dosage: 1.2 MG/KG DAY
     Dates: start: 20030203, end: 20030301
  2. TENEX [Concomitant]

REACTIONS (14)
  - AGGRESSION [None]
  - ANGER [None]
  - DISTURBANCE IN ATTENTION [None]
  - GRANDIOSITY [None]
  - HOMICIDAL IDEATION [None]
  - IMPULSIVE BEHAVIOUR [None]
  - INSOMNIA [None]
  - IRRITABILITY [None]
  - MANIA [None]
  - NAUSEA [None]
  - OPPOSITIONAL DEFIANT DISORDER [None]
  - PHYSICAL ASSAULT [None]
  - PSYCHOMOTOR HYPERACTIVITY [None]
  - SCREAMING [None]
